FAERS Safety Report 4806154-7 (Version None)
Quarter: 2005Q4

REPORT INFORMATION
  Report Type: 
  Country: None (occurrence: None)
  Receive Date: 20051019
  Receipt Date: 20051010
  Transmission Date: 20060501
  Serious: Yes (Other)
  Sender: FDA-Public Use
  Company Number: GBWYE042610OCT05

PATIENT
  Age: 78 Year
  Sex: Female

DRUGS (1)
  1. EQUANIL [Suspect]
     Dosage: SEE IMAGE
     Route: 048
     Dates: start: 19650101

REACTIONS (2)
  - DRUG WITHDRAWAL SYNDROME [None]
  - TREMOR [None]
